FAERS Safety Report 14998844 (Version 1)
Quarter: 2018Q2

REPORT INFORMATION
  Report Type: Spontaneous
  Country: DE (occurrence: DE)
  Receive Date: 20180612
  Receipt Date: 20180612
  Transmission Date: 20180711
  Serious: Yes (Hospitalization)
  Sender: FDA-Public Use
  Company Number: DE-TEVA-2018-DE-905327

PATIENT
  Age: 85 Year
  Sex: Male

DRUGS (14)
  1. SITAGLIPTIN [Concomitant]
     Active Substance: SITAGLIPTIN
     Dosage: 0.5-0-0-0
  2. TORASEMIDE [Suspect]
     Active Substance: TORSEMIDE
     Dosage: 1-1-0-0
  3. ALLOPURINOL. [Concomitant]
     Active Substance: ALLOPURINOL
     Dosage: 1--0-0-0
  4. MIRTAZAPIN [Concomitant]
     Active Substance: MIRTAZAPINE
     Dosage: 0-0-0.5-0
  5. METAMIZOL [Concomitant]
     Active Substance: METAMIZOLE SODIUM
     Dosage: 1-1-1-0
  6. GABAPENTIN. [Concomitant]
     Active Substance: GABAPENTIN
     Dosage: 0-0-1-0
  7. XIPAMID [Suspect]
     Active Substance: XIPAMIDE
     Dosage: 1-0-0-0
  8. MOVICOL [Concomitant]
     Active Substance: POLYETHYLENE GLYCOL 3350\POTASSIUM CHLORIDE\SODIUM BICARBONATE\SODIUM CHLORIDE
     Dosage: NK MG, 1-0-0-0
  9. SPIRONOLACTON [Suspect]
     Active Substance: SPIRONOLACTONE
     Dosage: 1-0-0-0
  10. TAMSULOSIN [Concomitant]
     Active Substance: TAMSULOSIN
     Dosage: 0-0-1-0
  11. MARCUMAR [Concomitant]
     Active Substance: PHENPROCOUMON
     Dosage: 3 MG, NACH INR
  12. COLECALCIFEROL [Concomitant]
     Active Substance: CHOLECALCIFEROL
     Dosage: 1000 IE, 0-2-0-0
     Route: 065
  13. LEVOTHYROXIN-NATRIUM [Concomitant]
     Active Substance: LEVOTHYROXINE SODIUM
     Dosage: 1-0-0-0
  14. DONEPEZIL. [Concomitant]
     Active Substance: DONEPEZIL
     Dosage: 2-0-0-0

REACTIONS (3)
  - Confusional state [Unknown]
  - Pyrexia [Unknown]
  - Dehydration [Unknown]
